FAERS Safety Report 7829815-4 (Version None)
Quarter: 2011Q4

REPORT INFORMATION
  Report Type: 
  Country: None (occurrence: None)
  Receive Date: 20111018
  Receipt Date: 20111007
  Transmission Date: 20120403
  Serious: Yes (Hospitalization)
  Sender: FDA-Public Use
  Company Number: 2011AP002351

PATIENT
  Age: 15 Year
  Sex: Male

DRUGS (3)
  1. MOVIPREP [Concomitant]
  2. SERTRALINE HYDROCHLORIDE [Suspect]
     Indication: ANXIETY
     Dosage: PO
     Route: 048
     Dates: start: 20110501, end: 20110627
  3. HALOPERIDOL [Concomitant]

REACTIONS (1)
  - GRAND MAL CONVULSION [None]
